FAERS Safety Report 14220374 (Version 2)
Quarter: 2024Q2

REPORT INFORMATION
  Report Type: Spontaneous
  Country: US (occurrence: US)
  Receive Date: 20171123
  Receipt Date: 20240430
  Transmission Date: 20240716
  Serious: Yes (Other)
  Sender: FDA-Public Use
  Company Number: US-JNJFOC-20161009928

PATIENT
  Age: 21 Year
  Sex: Male

DRUGS (5)
  1. RISPERDAL [Suspect]
     Active Substance: RISPERIDONE
     Indication: Autism spectrum disorder
     Route: 048
  2. RISPERDAL [Suspect]
     Active Substance: RISPERIDONE
     Indication: Behaviour disorder
     Route: 048
     Dates: start: 20031120, end: 20080630
  3. RISPERDAL [Suspect]
     Active Substance: RISPERIDONE
     Indication: Anxiety disorder
     Route: 048
  4. RISPERDAL [Suspect]
     Active Substance: RISPERIDONE
     Indication: Post-traumatic stress disorder
  5. RISPERIDONE [Suspect]
     Active Substance: RISPERIDONE
     Indication: Autism spectrum disorder
     Dosage: VARIED DOSE OF 1 MG AND 2 MG
     Route: 048
     Dates: start: 20080730, end: 20130926

REACTIONS (3)
  - Obesity [Not Recovered/Not Resolved]
  - Increased appetite [Unknown]
  - Sluggishness [Unknown]

NARRATIVE: CASE EVENT DATE: 20080101
